FAERS Safety Report 16181584 (Version 2)
Quarter: 2020Q3

REPORT INFORMATION
  Report Type: Spontaneous
  Country: JP (occurrence: JP)
  Receive Date: 20190410
  Receipt Date: 20200831
  Transmission Date: 20201102
  Serious: Yes (Other)
  Sender: FDA-Public Use
  Company Number: JP-BAUSCH-BL-2019-010397

PATIENT
  Sex: Female

DRUGS (9)
  1. LUCENTIS [Suspect]
     Active Substance: RANIBIZUMAB
     Dosage: TREAT?AND?EXTEND REGIMEN
     Route: 050
  2. LUCENTIS [Suspect]
     Active Substance: RANIBIZUMAB
     Dosage: PRO?RE?NATA REGIMEN
     Route: 050
  3. VISUDYNE [Suspect]
     Active Substance: VERTEPORFIN
     Indication: AGE-RELATED MACULAR DEGENERATION
     Route: 042
  4. LUCENTIS [Suspect]
     Active Substance: RANIBIZUMAB
     Indication: AGE-RELATED MACULAR DEGENERATION
     Dosage: PRO?RE?NATA REGIMEN (PRN)
     Route: 031
  5. LUCENTIS [Suspect]
     Active Substance: RANIBIZUMAB
     Dosage: 11?TO?12?WEEKLY FIXED REGIMEN
     Route: 050
  6. VISUDYNE [Suspect]
     Active Substance: VERTEPORFIN
     Route: 042
  7. LUCENTIS [Suspect]
     Active Substance: RANIBIZUMAB
     Dosage: TREAT?AND?EXTEND REGIMEN
     Route: 050
  8. TRIAMCINOLONE [Concomitant]
     Active Substance: TRIAMCINOLONE
     Indication: PRODUCT USED FOR UNKNOWN INDICATION
  9. VISUDYNE [Suspect]
     Active Substance: VERTEPORFIN
     Route: 042

REACTIONS (2)
  - Age-related macular degeneration [Recovering/Resolving]
  - Disease progression [Recovering/Resolving]
